FAERS Safety Report 24566142 (Version 1)
Quarter: 2024Q4

REPORT INFORMATION
  Report Type: Report from Study
  Country: GB (occurrence: GB)
  Receive Date: 20241030
  Receipt Date: 20241030
  Transmission Date: 20250114
  Serious: Yes (Other)
  Sender: TAKEDA
  Company Number: GB-TAKEDA-2022TUS066671

PATIENT
  Sex: Male

DRUGS (2)
  1. VEDOLIZUMAB [Suspect]
     Active Substance: VEDOLIZUMAB
     Indication: Crohn^s disease
     Dosage: 108 MILLIGRAM
     Route: 058
     Dates: start: 202112
  2. VEDOLIZUMAB [Suspect]
     Active Substance: VEDOLIZUMAB
     Indication: Crohn^s disease
     Dosage: 108 MILLIGRAM
     Route: 058
     Dates: start: 202112

REACTIONS (8)
  - Haematochezia [Unknown]
  - Injection site pruritus [Unknown]
  - Prostatic disorder [Unknown]
  - Product administered at inappropriate site [Unknown]
  - Liver function test abnormal [Unknown]
  - Incorrect dose administered [Unknown]
  - Weight decreased [Unknown]
  - Injection site pain [Unknown]
